FAERS Safety Report 14537069 (Version 1)
Quarter: 2018Q1

REPORT INFORMATION
  Report Type: Spontaneous
  Country: GB (occurrence: GB)
  Receive Date: 20180215
  Receipt Date: 20180215
  Transmission Date: 20180509
  Serious: Yes (Disabling)
  Sender: FDA-Public Use
  Company Number: GB-009507513-1802GBR007596

PATIENT
  Age: 30 Year
  Sex: Male
  Weight: 50 kg

DRUGS (6)
  1. VENTOLIN [Concomitant]
     Active Substance: ALBUTEROL SULFATE
     Indication: WHEEZING
     Dosage: EVERY FOUR HOURS. ; AS NECESSARY
     Dates: start: 20110722
  2. BETAMETHASONE VALERATE. [Concomitant]
     Active Substance: BETAMETHASONE VALERATE
     Dosage: EVERY DAY AS DIRECTED. ; AS NECESSARY
     Dates: start: 20091207
  3. MONTELUKAST SODIUM. [Suspect]
     Active Substance: MONTELUKAST SODIUM
     Dates: start: 20180103, end: 20180106
  4. KETOCONAZOLE. [Concomitant]
     Active Substance: KETOCONAZOLE
     Dosage: APPLY SPARINGLY
     Dates: start: 20090203
  5. FOSTAIR [Concomitant]
     Active Substance: BECLOMETHASONE\FORMOTEROL
     Dosage: PUFFS.
     Dates: start: 20170905
  6. COCOIS [Concomitant]
     Dosage: TO BE APPLIED ONCE EVERY WEEK. ; AS NECESSARY
     Dates: start: 20091207

REACTIONS (5)
  - Malaise [Unknown]
  - Dizziness [Recovering/Resolving]
  - Headache [Recovered/Resolved]
  - Nausea [Recovering/Resolving]
  - Vomiting [Recovering/Resolving]

NARRATIVE: CASE EVENT DATE: 20180103
